FAERS Safety Report 8115802-8 (Version None)
Quarter: 2011Q4

REPORT INFORMATION
  Report Type: 
  Country: None (occurrence: None)
  Receive Date: 20111227
  Receipt Date: 20110907
  Transmission Date: 20120403
  Serious: Yes (Other)
  Sender: FDA-Public Use
  Company Number: PHHY2011US07182

PATIENT
  Age: 42 Year
  Sex: Female
  Weight: 92.5 kg

DRUGS (10)
  1. GILENYA [Suspect]
     Indication: MULTIPLE SCLEROSIS
     Dosage: 0.5 MG, QD, ORAL
     Route: 048
     Dates: start: 20110119
  2. EFFEXOR XR [Concomitant]
  3. TYLENOL ALLERGY SINUS (CHLORPHENAMINE MALEATE, PARACETAMOL, PSEUDOEPHE [Concomitant]
  4. IBUPROFEN [Concomitant]
  5. SIMVASTATIN [Concomitant]
  6. OMEPRAZOLE [Concomitant]
  7. VITAMIN B12 [Concomitant]
  8. ATENOLOL [Concomitant]
  9. GABAPENTIN [Concomitant]
  10. BACLOFEN [Concomitant]

REACTIONS (5)
  - FUNGAL INFECTION [None]
  - FATIGUE [None]
  - ARTHRALGIA [None]
  - PAIN [None]
  - MYALGIA [None]
